FAERS Safety Report 9283518 (Version 1)
Quarter: 2013Q2

REPORT INFORMATION
  Report Type: Spontaneous
  Country: US (occurrence: US)
  Receive Date: 20130510
  Receipt Date: 20130510
  Transmission Date: 20140414
  Serious: No
  Sender: FDA-Public Use
  Company Number: US-GLAXOSMITHKLINE-A1014026A

PATIENT
  Age: 58 Year
  Sex: Female

DRUGS (24)
  1. TYKERB [Suspect]
     Indication: NEOPLASM MALIGNANT
     Dosage: 250MG FIVE TIMES PER DAY
     Route: 048
     Dates: start: 20121127, end: 20130130
  2. MEGESTROL ACETATE [Concomitant]
  3. POLYETHYLENE GLYCOL [Concomitant]
  4. SENOKOT S [Concomitant]
  5. NYSTATIN ORAL SUSPENSION [Concomitant]
  6. OLANZAPINE [Concomitant]
  7. LASIX [Concomitant]
  8. HYDROMORPHONE [Concomitant]
  9. VALACYCLOVIR [Concomitant]
  10. FENTANYL PATCHES [Concomitant]
  11. CIPRO [Concomitant]
  12. PREDNISONE [Concomitant]
  13. OFLOXACIN [Concomitant]
  14. TOBRAMYCIN [Concomitant]
  15. HYDROXYCINE [Concomitant]
  16. TRAZODONE [Concomitant]
  17. DELTASONE [Concomitant]
  18. LETROZOLE [Concomitant]
  19. LISINOPRIL [Concomitant]
  20. SIMVASTATIN [Concomitant]
  21. METHOTREXATE [Concomitant]
  22. KLOR-CON [Concomitant]
  23. BACTRIM DS [Concomitant]
  24. EYE DROPS [Concomitant]

REACTIONS (2)
  - Diarrhoea [Recovered/Resolved]
  - Vomiting [Unknown]
